FAERS Safety Report 20554028 (Version 1)
Quarter: 2022Q1

REPORT INFORMATION
  Report Type: Report from Study
  Country: DE (occurrence: DE)
  Receive Date: 20220304
  Receipt Date: 20220304
  Transmission Date: 20220423
  Serious: Yes (Death)
  Sender: FDA-Public Use
  Company Number: DE-ABBVIE-22K-062-4302905-00

PATIENT
  Age: 80 Year
  Sex: Male

DRUGS (2)
  1. CARBIDOPA\LEVODOPA [Suspect]
     Active Substance: CARBIDOPA\LEVODOPA
     Indication: Parkinson^s disease
     Dosage: MD 7,6 ML, CRD 2,3 ML/H, (CRN: 0 ML/H), ED 1 ML
     Route: 050
     Dates: start: 20200708
  2. CARBIDOPA\LEVODOPA [Suspect]
     Active Substance: CARBIDOPA\LEVODOPA

REACTIONS (2)
  - Death [Fatal]
  - Unevaluable event [Unknown]

NARRATIVE: CASE EVENT DATE: 20220205
